FAERS Safety Report 26106791 (Version 1)
Quarter: 2025Q4

REPORT INFORMATION
  Report Type: Spontaneous
  Country: CN (occurrence: CN)
  Receive Date: 20251201
  Receipt Date: 20251201
  Transmission Date: 20260117
  Serious: Yes (Other)
  Sender: STRIDES
  Company Number: CN-STRIDES ARCOLAB LIMITED-2025SP014679

PATIENT
  Age: 66 Year
  Sex: Male

DRUGS (4)
  1. ISOSORBIDE MONONITRATE [Suspect]
     Active Substance: ISOSORBIDE MONONITRATE
     Indication: Arteriospasm coronary
     Dosage: 40 MILLIGRAM, QD
     Route: 065
  2. ISOSORBIDE MONONITRATE [Suspect]
     Active Substance: ISOSORBIDE MONONITRATE
     Dosage: DOSAGE INCREASED
     Route: 065
  3. DILTIAZEM [Suspect]
     Active Substance: DILTIAZEM
     Indication: Arteriospasm coronary
     Dosage: 90 MILLIGRAM, TID
     Route: 065
  4. DILTIAZEM [Suspect]
     Active Substance: DILTIAZEM
     Dosage: DOSAGE INCREASED
     Route: 065

REACTIONS (4)
  - Condition aggravated [Unknown]
  - Hypotension [Unknown]
  - Dizziness [Unknown]
  - Off label use [Unknown]
